FAERS Safety Report 24258013 (Version 1)
Quarter: 2024Q3

REPORT INFORMATION
  Report Type: Spontaneous
  Country: US (occurrence: US)
  Receive Date: 20240828
  Receipt Date: 20240828
  Transmission Date: 20241017
  Serious: Yes (Hospitalization)
  Sender: JOHNSON AND JOHNSON
  Company Number: US-JNJFOC-20240854391

PATIENT
  Age: 61 Year
  Sex: Female
  Weight: 49 kg

DRUGS (25)
  1. DARZALEX [Suspect]
     Active Substance: DARATUMUMAB
     Indication: Plasma cell myeloma
     Route: 058
     Dates: start: 20221213, end: 20230203
  2. DARZALEX [Suspect]
     Active Substance: DARATUMUMAB
     Route: 058
     Dates: start: 20230222, end: 20230519
  3. DARZALEX [Suspect]
     Active Substance: DARATUMUMAB
     Route: 058
     Dates: start: 20230614, end: 20231013
  4. ELRANATAMAB [Suspect]
     Active Substance: ELRANATAMAB
     Indication: Plasma cell myeloma
     Route: 058
     Dates: start: 20221128, end: 20221128
  5. ELRANATAMAB [Suspect]
     Active Substance: ELRANATAMAB
     Route: 058
     Dates: start: 20221201
  6. ELRANATAMAB [Suspect]
     Active Substance: ELRANATAMAB
     Route: 058
     Dates: start: 20221206, end: 20230512
  7. ELRANATAMAB [Suspect]
     Active Substance: ELRANATAMAB
     Route: 058
     Dates: start: 20230519, end: 20231017
  8. ELRANATAMAB [Suspect]
     Active Substance: ELRANATAMAB
     Route: 058
     Dates: start: 20231031, end: 20240514
  9. BROWN MIXTURE [ANTIMONY POTASSIUM TARTRATE;GLYCYRRHIZA SPP.;PAPAVER SO [Concomitant]
     Indication: Rhinitis allergic
     Route: 048
     Dates: start: 20240506
  10. BROWN MIXTURE [ANTIMONY POTASSIUM TARTRATE;GLYCYRRHIZA SPP.;PAPAVER SO [Concomitant]
     Indication: Cough
  11. FENOTEROL [Concomitant]
     Active Substance: FENOTEROL
     Indication: Rhinitis allergic
     Dates: start: 20240527, end: 20240530
  12. FENOTEROL [Concomitant]
     Active Substance: FENOTEROL
     Indication: Cough
  13. AMBROXOL [Concomitant]
     Active Substance: AMBROXOL
     Indication: Rhinitis allergic
     Route: 048
     Dates: start: 20240527, end: 20240530
  14. AMBROXOL [Concomitant]
     Active Substance: AMBROXOL
     Indication: Cough
     Route: 048
     Dates: start: 20240527, end: 20240530
  15. BENZONATATE [Concomitant]
     Active Substance: BENZONATATE
     Indication: Rhinitis allergic
     Dates: start: 20240527, end: 20240530
  16. BENZONATATE [Concomitant]
     Active Substance: BENZONATATE
     Indication: Cough
     Route: 048
     Dates: start: 20240527, end: 20240530
  17. LOPERAMIDE [Concomitant]
     Active Substance: LOPERAMIDE
     Indication: Diarrhoea
     Dates: start: 20231031
  18. FEXOFENADINE [Concomitant]
     Active Substance: FEXOFENADINE HYDROCHLORIDE
     Indication: Rhinitis allergic
     Dates: start: 20240311, end: 20240530
  19. LACTOBACILLUS CASEI [Concomitant]
     Active Substance: LACTOBACILLUS CASEI
     Indication: Diarrhoea
     Route: 048
     Dates: start: 20240123
  20. ACETAMINOPHEN [Concomitant]
     Active Substance: ACETAMINOPHEN
     Indication: Sinusitis
     Route: 048
     Dates: start: 20240513, end: 20240527
  21. AMOXICILLIN\CLAVULANIC ACID [Concomitant]
     Active Substance: AMOXICILLIN\CLAVULANIC ACID
     Indication: Acute sinusitis
     Route: 048
     Dates: start: 20240513, end: 20240520
  22. ACETYLCYSTEINE [Concomitant]
     Active Substance: ACETYLCYSTEINE
     Indication: Cough
     Route: 048
     Dates: start: 20240408, end: 20240527
  23. ACETYLCYSTEINE [Concomitant]
     Active Substance: ACETYLCYSTEINE
     Indication: Rhinitis allergic
  24. ACYCLOVIR [Concomitant]
     Active Substance: ACYCLOVIR
     Route: 048
     Dates: start: 20230308
  25. LORAZEPAM [Concomitant]
     Active Substance: LORAZEPAM
     Indication: Insomnia
     Dates: start: 20221206

REACTIONS (1)
  - Pneumonia [Recovered/Resolved]

NARRATIVE: CASE EVENT DATE: 20240530
